FAERS Safety Report 6811852-X (Version None)
Quarter: 2010Q2

REPORT INFORMATION
  Report Type: 
  Country: None (occurrence: None)
  Receive Date: 20100628
  Receipt Date: 20100621
  Transmission Date: 20101027
  Serious: Yes (Hospitalization, Other)
  Sender: FDA-Public Use
  Company Number: 2010SP034783

PATIENT
  Age: 18 Year
  Sex: Female

DRUGS (2)
  1. CLARITIN [Suspect]
     Indication: URTICARIA
     Dosage: 10 MG; BID; PO
     Route: 048
     Dates: start: 20100607, end: 20100607
  2. VITAMINS (VITAMINS  90003601/) [Suspect]
     Indication: DRUG USE FOR UNKNOWN INDICATION
     Dosage: ; PO
     Route: 048
     Dates: start: 20100608, end: 20100612

REACTIONS (1)
  - TOXIC EPIDERMAL NECROLYSIS [None]
